FAERS Safety Report 8080651-6 (Version None)
Quarter: 2012Q1

REPORT INFORMATION
  Report Type: 
  Country: None (occurrence: None)
  Receive Date: 20120130
  Receipt Date: 20120117
  Transmission Date: 20120608
  Serious: Yes (Other)
  Sender: FDA-Public Use
  Company Number: PHHY2012FR005630

PATIENT
  Sex: Male

DRUGS (3)
  1. NEORAL [Suspect]
     Indication: RENAL TRANSPLANT
  2. MYCOPHENOLATE MOFETIL (CELLCEPT) [Concomitant]
  3. SANDIMMUNE [Suspect]
     Indication: RENAL TRANSPLANT

REACTIONS (3)
  - KIDNEY FIBROSIS [None]
  - RENAL VESSEL DISORDER [None]
  - RENAL IMPAIRMENT [None]
